FAERS Safety Report 13521777 (Version 1)
Quarter: 2017Q2

REPORT INFORMATION
  Report Type: Spontaneous
  Country: SE (occurrence: SE)
  Receive Date: 20170508
  Receipt Date: 20170508
  Transmission Date: 20170830
  Serious: Yes (Hospitalization)
  Sender: FDA-Public Use
  Company Number: SE-TEVA-763944ACC

PATIENT
  Age: 84 Year
  Sex: Male

DRUGS (12)
  1. ALLOPURINOL NORDIC DRUGS [Suspect]
     Active Substance: ALLOPURINOL
     Indication: GOUT
     Route: 048
     Dates: end: 20151021
  2. FINASTERID SANDOZ [Concomitant]
  3. ENALAPRIL/HYDROCHLOROTHIAZIDE [Suspect]
     Active Substance: ENALAPRIL MALEATE\HYDROCHLOROTHIAZIDE
     Indication: HYPERTENSION
     Dosage: 20 MG ENALAPRILALEATE AND 12.5 MG HYDROCHLOROTHIAZIDE / DAY
     Route: 048
     Dates: start: 20090326, end: 20151019
  4. OMEPRAZOL ACTAVIS [Concomitant]
     Active Substance: OMEPRAZOLE
  5. PREDNISOLON ALTERNOVA [Concomitant]
     Active Substance: PREDNISOLONE
  6. CETIMAX [Concomitant]
  7. DERMOVAT [Concomitant]
     Active Substance: CLOBETASOL
  8. FURIX RETARD [Concomitant]
     Active Substance: FUROSEMIDE
  9. FOLACIN [Concomitant]
     Active Substance: FOLIC ACID
  10. ALVEDON [Concomitant]
     Active Substance: ACETAMINOPHEN
  11. METOPROLOL GEA RETARD [Concomitant]
  12. KALCIPOS-D FORTE [Concomitant]
     Active Substance: CALCIUM CARBONATE\CHOLECALCIFEROL

REACTIONS (1)
  - Angioedema [Recovered/Resolved]

NARRATIVE: CASE EVENT DATE: 20151018
